FAERS Safety Report 23993696 (Version 1)
Quarter: 2024Q2

REPORT INFORMATION
  Report Type: Spontaneous
  Country: US (occurrence: None)
  Receive Date: 20240618
  Receipt Date: 20240618
  Transmission Date: 20240715
  Serious: Yes (Other)
  Sender: FDA-Public Use
  Company Number: None

PATIENT
  Age: 61 Year
  Sex: Female

DRUGS (1)
  1. CIBINQO [Suspect]
     Active Substance: ABROCITINIB
     Dosage: UNKNOWN, NOT DISPENSED BY OPTUM

REACTIONS (4)
  - Immune system disorder [None]
  - Quality of life decreased [None]
  - Dermatitis atopic [None]
  - Therapy cessation [None]
